FAERS Safety Report 6569719-0 (Version None)
Quarter: 2010Q1

REPORT INFORMATION
  Report Type: 
  Country: None (occurrence: None)
  Receive Date: 20100204
  Receipt Date: 20100201
  Transmission Date: 20100710
  Serious: Yes (Death, Hospitalization, Other)
  Sender: FDA-Public Use
  Company Number: PHHY2009GB58370

PATIENT
  Sex: Male

DRUGS (1)
  1. CLOZARIL [Suspect]
     Indication: SCHIZOPHRENIA
     Dosage: UNK
     Dates: start: 20021209

REACTIONS (5)
  - ASTHENIA [None]
  - PNEUMONIA [None]
  - PROSTATE CANCER METASTATIC [None]
  - SEPSIS [None]
  - WHITE BLOOD CELL COUNT DECREASED [None]
